FAERS Safety Report 9804182 (Version 3)
Quarter: 2014Q1

REPORT INFORMATION
  Report Type: Spontaneous
  Country: US (occurrence: US)
  Receive Date: 20140108
  Receipt Date: 20140326
  Transmission Date: 20141002
  Serious: Yes (Other)
  Sender: FDA-Public Use
  Company Number: US-UCBSA-107659

PATIENT
  Age: 50 Year
  Sex: Male

DRUGS (2)
  1. KEPPRA XR [Suspect]
     Indication: CONVULSION
     Dosage: STRENGTH: 500 MG; ALMOST DOUBLED HIS DOSE
     Dates: start: 20131113
  2. KEPPRA XR [Suspect]
     Indication: CONVULSION

REACTIONS (3)
  - Brain neoplasm malignant [Unknown]
  - Convulsion [Unknown]
  - Inappropriate schedule of drug administration [Not Recovered/Not Resolved]
